FAERS Safety Report 23906033 (Version 6)
Quarter: 2025Q2

REPORT INFORMATION
  Report Type: Report from Study
  Country: US (occurrence: US)
  Receive Date: 20240527
  Receipt Date: 20250620
  Transmission Date: 20250717
  Serious: Yes (Other)
  Sender: TAKEDA
  Company Number: US-TAKEDA-2024TUS041013

PATIENT
  Sex: Male

DRUGS (6)
  1. PONATINIB [Suspect]
     Active Substance: PONATINIB
     Indication: Chronic myeloid leukaemia
     Dosage: 30 MILLIGRAM, QD
     Dates: start: 20240421, end: 20240528
  2. PONATINIB [Suspect]
     Active Substance: PONATINIB
     Dosage: 30 MILLIGRAM, QD
  3. PONATINIB [Suspect]
     Active Substance: PONATINIB
     Dosage: 15 MILLIGRAM, QD
  4. PONATINIB [Suspect]
     Active Substance: PONATINIB
     Dosage: 15 MILLIGRAM, QD
  5. SPRYCEL [Concomitant]
     Active Substance: DASATINIB
  6. ASPIRIN [Concomitant]
     Active Substance: ASPIRIN

REACTIONS (11)
  - Craniofacial fracture [Unknown]
  - Thrombocytopenia [Unknown]
  - Disturbance in attention [Unknown]
  - Accident [Unknown]
  - Product dose omission issue [Unknown]
  - Haemorrhage [Unknown]
  - Headache [Unknown]
  - Nausea [Unknown]
  - Dry skin [Unknown]
  - Fatigue [Unknown]
  - Platelet count decreased [Unknown]
